FAERS Safety Report 13220627 (Version 1)
Quarter: 2017Q1

REPORT INFORMATION
  Report Type: Other
  Country: US (occurrence: US)
  Receive Date: 20170211
  Receipt Date: 20170211
  Transmission Date: 20170428
  Serious: No
  Sender: FDA-Public Use
  Company Number: US-ACORDA-ACO_128766_2016

PATIENT
  Age: 54 Year
  Sex: Male
  Weight: 86.17 kg

DRUGS (2)
  1. AMPYRA [Suspect]
     Active Substance: DALFAMPRIDINE
     Indication: GAIT DISTURBANCE
     Dosage: 10 MG, BID
     Route: 048
     Dates: start: 201609
  2. IBUPROFEN. [Suspect]
     Active Substance: IBUPROFEN
     Indication: BURNING SENSATION
     Dosage: UNK
     Route: 048

REACTIONS (2)
  - Chest discomfort [Not Recovered/Not Resolved]
  - Burning sensation [Not Recovered/Not Resolved]

NARRATIVE: CASE EVENT DATE: 201609
